FAERS Safety Report 11895037 (Version 1)
Quarter: 2016Q1

REPORT INFORMATION
  Report Type: Spontaneous
  Country: US (occurrence: None)
  Receive Date: 20160106
  Receipt Date: 20160106
  Transmission Date: 20160526
  Serious: Yes (Hospitalization)
  Sender: FDA-Public Use
  Company Number: None

PATIENT
  Age: 50 Year
  Sex: Male
  Weight: 102.06 kg

DRUGS (2)
  1. LOVASTATIN. [Suspect]
     Active Substance: LOVASTATIN
     Indication: BLOOD CHOLESTEROL INCREASED
     Dosage: 1 ONCE DAILY
     Route: 048
     Dates: start: 20151022, end: 20151203
  2. FINESTERIDE [Concomitant]
     Active Substance: FINASTERIDE

REACTIONS (2)
  - Generalised tonic-clonic seizure [None]
  - Loss of consciousness [None]

NARRATIVE: CASE EVENT DATE: 20151204
